FAERS Safety Report 18338776 (Version 5)
Quarter: 2021Q3

REPORT INFORMATION
  Report Type: Spontaneous
  Country: DE (occurrence: DE)
  Receive Date: 20201002
  Receipt Date: 20210910
  Transmission Date: 20211014
  Serious: Yes (Other)
  Sender: FDA-Public Use
  Company Number: DE-MYLANLABS-2020M1082739

PATIENT
  Age: 50 Year
  Sex: Female

DRUGS (2)
  1. ZELDOX [Interacting]
     Active Substance: ZIPRASIDONE
     Indication: PRODUCT USED FOR UNKNOWN INDICATION
     Dosage: 80 MG, 2X/DAY
     Dates: start: 2011, end: 20201115
  2. CLOPIDOGREL [Suspect]
     Active Substance: CLOPIDOGREL BISULFATE
     Indication: PRODUCT USED FOR UNKNOWN INDICATION
     Dosage: UNK
     Dates: start: 2019

REACTIONS (15)
  - Angina pectoris [Not Recovered/Not Resolved]
  - Blood lactate dehydrogenase increased [Recovered/Resolved]
  - Incontinence [Recovered/Resolved]
  - Suicide attempt [Unknown]
  - Blood creatine phosphokinase abnormal [Recovered/Resolved]
  - Cardiac disorder [Recovered/Resolved]
  - Hypertensive crisis [Recovered/Resolved]
  - Muscular weakness [Recovered/Resolved]
  - Drug interaction [Unknown]
  - Dyspnoea [Not Recovered/Not Resolved]
  - Cardiac failure [Recovered/Resolved]
  - Weight decreased [Unknown]
  - Electrocardiogram QT prolonged [Recovered/Resolved]
  - Left ventricular failure [Recovered/Resolved]
  - Blood pressure abnormal [Recovered/Resolved]

NARRATIVE: CASE EVENT DATE: 2019
